FAERS Safety Report 5091669-X (Version None)
Quarter: 2006Q3

REPORT INFORMATION
  Report Type: 
  Country: None (occurrence: None)
  Receive Date: 20060829
  Receipt Date: 20060612
  Transmission Date: 20061208
  Serious: Yes (Hospitalization)
  Sender: FDA-Public Use
  Company Number: US-BAYER-200614142BWH

PATIENT
  Age: 77 Year
  Sex: Female
  Weight: 57 kg

DRUGS (9)
  1. SORAFENIB [Suspect]
     Indication: METASTATIC MALIGNANT MELANOMA
     Dosage: TOTAL DAILY DOSE: 800 MG  UNIT DOSE: 200 MG
     Route: 048
     Dates: start: 20060519, end: 20060609
  2. LISINOPRIL [Concomitant]
     Indication: HYPERTENSION
     Dosage: UNIT DOSE: 10 MG
     Dates: start: 20060401
  3. XANAX [Concomitant]
     Indication: ANXIETY
     Dosage: TOTAL DAILY DOSE: 0.50 MG
     Dates: start: 20060425
  4. ZOSYN [Concomitant]
     Indication: PNEUMONIA ASPIRATION
  5. METOPROLOL TARTRATE [Concomitant]
  6. PROTONIX [Concomitant]
  7. ATIVAN [Concomitant]
  8. CEREBYX [Concomitant]
  9. HALDOL [Concomitant]
     Indication: DELIRIUM

REACTIONS (1)
  - CONVULSION [None]
